FAERS Safety Report 6401212-8 (Version None)
Quarter: 2009Q4

REPORT INFORMATION
  Report Type: 
  Country: None (occurrence: None)
  Receive Date: 20091015
  Receipt Date: 20091005
  Transmission Date: 20100525
  Serious: Yes (Death, Hospitalization, Other)
  Sender: FDA-Public Use
  Company Number: US-ROCHE-660751

PATIENT
  Age: 38 Year
  Sex: Female

DRUGS (5)
  1. MYCOPHENOLATE MOFETIL [Suspect]
     Indication: PROPHYLAXIS AGAINST GRAFT VERSUS HOST DISEASE
     Route: 065
  2. MYCOPHENOLATE MOFETIL [Suspect]
     Dosage: TAPERED OFF
     Route: 065
  3. TACROLIMUS [Suspect]
     Indication: PROPHYLAXIS AGAINST GRAFT VERSUS HOST DISEASE
     Route: 065
  4. CYCLOPHOSPHAMIDE [Concomitant]
     Indication: BONE MARROW CONDITIONING REGIMEN
  5. FLUDARABINE [Concomitant]
     Indication: BONE MARROW CONDITIONING REGIMEN

REACTIONS (10)
  - ACUTE GRAFT VERSUS HOST DISEASE IN INTESTINE [None]
  - ACUTE GRAFT VERSUS HOST DISEASE IN SKIN [None]
  - FALL [None]
  - GRAFT VERSUS HOST DISEASE [None]
  - MICROANGIOPATHIC HAEMOLYTIC ANAEMIA [None]
  - MUSCLE ATROPHY [None]
  - MYOPATHY [None]
  - PNEUMONIA [None]
  - PROGRESSIVE MULTIFOCAL LEUKOENCEPHALOPATHY [None]
  - SUBARACHNOID HAEMORRHAGE [None]
